FAERS Safety Report 4587847-6 (Version None)
Quarter: 2005Q1

REPORT INFORMATION
  Report Type: 
  Country: None (occurrence: None)
  Receive Date: 20050125
  Receipt Date: 20040909
  Transmission Date: 20050727
  Serious: No
  Sender: FDA-Public Use
  Company Number: USA040977860

PATIENT
  Age: 51 Year
  Sex: Female

DRUGS (4)
  1. FORTEO [Suspect]
     Indication: OSTEOPOROSIS
     Dosage: 20 UG/1 DAY
     Dates: start: 20040902
  2. ATIVAN [Concomitant]
  3. ELAVIL [Concomitant]
  4. METHADONE HCL [Concomitant]

REACTIONS (7)
  - DECREASED APPETITE [None]
  - DYSGEUSIA [None]
  - FEELING HOT AND COLD [None]
  - HEADACHE [None]
  - HEART RATE INCREASED [None]
  - HYPERHIDROSIS [None]
  - NAUSEA [None]
